FAERS Safety Report 6949615-7 (Version None)
Quarter: 2010Q3

REPORT INFORMATION
  Report Type: 
  Country: None (occurrence: None)
  Receive Date: 20100828
  Receipt Date: 20091216
  Transmission Date: 20110219
  Serious: No
  Sender: FDA-Public Use
  Company Number: US-ABBOTT-09P-163-0615860-00

PATIENT
  Sex: Male
  Weight: 78.088 kg

DRUGS (2)
  1. NIASPAN [Suspect]
     Indication: FAMILIAL RISK FACTOR
     Route: 048
     Dates: start: 20090901
  2. CENTRUM ONCE-A-DAY [Concomitant]
     Indication: PRODUCT USED FOR UNKNOWN INDICATION
     Route: 048

REACTIONS (2)
  - HIGH DENSITY LIPOPROTEIN DECREASED [None]
  - WEIGHT DECREASED [None]
